FAERS Safety Report 18049069 (Version 1)
Quarter: 2020Q3

REPORT INFORMATION
  Report Type: Spontaneous
  Country: US (occurrence: US)
  Receive Date: 20200721
  Receipt Date: 20200721
  Transmission Date: 20201103
  Serious: No
  Sender: FDA-Public Use
  Company Number: US-PFIZER INC-2020273902

PATIENT
  Age: 58 Year
  Sex: Female
  Weight: 54.43 kg

DRUGS (2)
  1. DUAVEE [Suspect]
     Active Substance: BAZEDOXIFENE ACETATE\ESTROGENS, CONJUGATED
     Indication: MENOPAUSAL DISORDER
     Dosage: 45MG/20MG, 1X/DAY
     Route: 048
     Dates: start: 2017
  2. DUAVEE [Suspect]
     Active Substance: BAZEDOXIFENE ACETATE\ESTROGENS, CONJUGATED
     Dosage: 0.45/2.0MG TABLET, 1X/DAY
     Route: 048

REACTIONS (2)
  - Wrong dose [Unknown]
  - Increased appetite [Unknown]
